FAERS Safety Report 23533306 (Version 1)
Quarter: 2024Q1

REPORT INFORMATION
  Report Type: Spontaneous
  Country: US (occurrence: None)
  Receive Date: 20240216
  Receipt Date: 20240216
  Transmission Date: 20240409
  Serious: Yes (Hospitalization)
  Sender: FDA-Public Use
  Company Number: None

PATIENT
  Sex: Female

DRUGS (1)
  1. PULMOZYME [Suspect]
     Active Substance: DORNASE ALFA
     Indication: Cystic fibrosis
     Dosage: FREQUENCY : DAILY;?OTHER ROUTE : VIA NEB INHALATION;?
     Route: 050
     Dates: start: 20231102

REACTIONS (2)
  - Infective pulmonary exacerbation of cystic fibrosis [None]
  - Rhinovirus infection [None]
